FAERS Safety Report 18539996 (Version 1)
Quarter: 2020Q4

REPORT INFORMATION
  Report Type: Spontaneous
  Country: US (occurrence: US)
  Receive Date: 20201124
  Receipt Date: 20201124
  Transmission Date: 20210114
  Serious: No
  Sender: FDA-Public Use
  Company Number: US-LUPIN PHARMACEUTICALS INC.-2020-02842

PATIENT
  Age: 12 Year
  Sex: Male
  Weight: 59.41 kg

DRUGS (1)
  1. GAVILAX [Suspect]
     Active Substance: POLYETHYLENE GLYCOL 3350
     Indication: CONSTIPATION
     Dosage: 1 DOSAGE FORM, QD
     Route: 048
     Dates: start: 20200320, end: 20200320

REACTIONS (4)
  - No adverse event [Unknown]
  - Product odour abnormal [Unknown]
  - Poor quality product administered [Unknown]
  - Product taste abnormal [Unknown]

NARRATIVE: CASE EVENT DATE: 20200320
